FAERS Safety Report 7274883-4 (Version None)
Quarter: 2011Q1

REPORT INFORMATION
  Report Type: 
  Country: None (occurrence: None)
  Receive Date: 20110202
  Receipt Date: 20110202
  Transmission Date: 20110831
  Serious: Yes (Other)
  Sender: FDA-Public Use
  Company Number: None

PATIENT
  Sex: Female

DRUGS (1)
  1. TACROLIMUS [Suspect]
     Dosage: 0.5MG BID PO
     Route: 048
     Dates: start: 20110111, end: 20110111

REACTIONS (4)
  - ACCIDENTAL EXPOSURE [None]
  - RASH [None]
  - PRODUCT SUBSTITUTION ISSUE [None]
  - HYPERSENSITIVITY [None]
